FAERS Safety Report 4732807-5 (Version None)
Quarter: 2005Q3

REPORT INFORMATION
  Report Type: 
  Country: None (occurrence: None)
  Receive Date: 20050801
  Receipt Date: 20050726
  Transmission Date: 20060218
  Serious: Yes (Life-Threatening, Hospitalization, Other)
  Sender: FDA-Public Use
  Company Number: 2005082762

PATIENT
  Age: 63 Year
  Sex: Male
  Weight: 79 kg

DRUGS (8)
  1. ATORVASTATIN CALCIUM [Suspect]
     Indication: ILL-DEFINED DISORDER
     Dosage: UNKNOWN (40 MG), UNKNOWN
     Dates: end: 20050527
  2. PLAVIX [Concomitant]
  3. COVERSYL (PERINDOPRIL) [Concomitant]
  4. LODOZ (BISOPROLOL FUMARATE, HYDROCHLOROTHIAZIDE) [Concomitant]
  5. AMARYL [Concomitant]
  6. INEXIUM (ESOMEPRAZOLE MAGNESIUM) [Concomitant]
  7. TAMSULOSIN HCL [Concomitant]
  8. DILTIAZEM [Concomitant]

REACTIONS (4)
  - HAEMODIALYSIS [None]
  - HYPERKALAEMIA [None]
  - RENAL FAILURE ACUTE [None]
  - RHABDOMYOLYSIS [None]
